FAERS Safety Report 17739529 (Version 4)
Quarter: 2025Q2

REPORT INFORMATION
  Report Type: Report from Study
  Country: US (occurrence: US)
  Receive Date: 20200504
  Receipt Date: 20250530
  Transmission Date: 20250716
  Serious: Yes (Other)
  Sender: TAKEDA
  Company Number: US-SHIRE-US202015264

PATIENT
  Age: 10 Year
  Sex: Female
  Weight: 22 kg

DRUGS (19)
  1. HUMAN IMMUNOGLOBULIN G [Suspect]
     Active Substance: HUMAN IMMUNOGLOBULIN G
     Indication: Immune system disorder
     Dosage: 3 GRAM, 1/WEEK
     Dates: start: 20170802
  2. HUMAN IMMUNOGLOBULIN G [Suspect]
     Active Substance: HUMAN IMMUNOGLOBULIN G
     Indication: Hypergammaglobulinaemia
     Dosage: 2.5 GRAM, 1/WEEK
     Dates: start: 20170809
  3. HUMAN IMMUNOGLOBULIN G [Suspect]
     Active Substance: HUMAN IMMUNOGLOBULIN G
     Indication: Immune system disorder
     Dosage: 7 GRAM, Q2WEEKS
     Dates: start: 20210506
  4. HUMAN IMMUNOGLOBULIN G [Suspect]
     Active Substance: HUMAN IMMUNOGLOBULIN G
     Indication: Hypergammaglobulinaemia
     Dosage: 7 GRAM, Q2WEEKS
  5. HUMAN IMMUNOGLOBULIN G [Suspect]
     Active Substance: HUMAN IMMUNOGLOBULIN G
     Dosage: 7 GRAM, Q2WEEKS
  6. HUMAN IMMUNOGLOBULIN G [Suspect]
     Active Substance: HUMAN IMMUNOGLOBULIN G
     Dosage: 7 GRAM, Q2WEEKS
  7. HUMAN IMMUNOGLOBULIN G [Suspect]
     Active Substance: HUMAN IMMUNOGLOBULIN G
     Dosage: 7 GRAM, Q2WEEKS
  8. HUMAN IMMUNOGLOBULIN G [Suspect]
     Active Substance: HUMAN IMMUNOGLOBULIN G
     Dosage: 7 GRAM, Q2WEEKS
  9. HUMAN IMMUNOGLOBULIN G [Suspect]
     Active Substance: HUMAN IMMUNOGLOBULIN G
     Dosage: 8 GRAM, Q2WEEKS
  10. HUMAN IMMUNOGLOBULIN G [Suspect]
     Active Substance: HUMAN IMMUNOGLOBULIN G
     Dosage: 11 GRAM, Q2WEEKS
  11. DIPHENHYDRAMINE [Concomitant]
     Active Substance: DIPHENHYDRAMINE
  12. EPINEPHRINE [Concomitant]
     Active Substance: EPINEPHRINE
  13. FLUTICASONE PROPIONATE [Concomitant]
     Active Substance: FLUTICASONE PROPIONATE
  14. ALLEGRA ALLERGY [Concomitant]
     Active Substance: FEXOFENADINE HYDROCHLORIDE
  15. ACETAMINOPHEN [Concomitant]
     Active Substance: ACETAMINOPHEN
  16. ZOLOFT [Concomitant]
     Active Substance: SERTRALINE HYDROCHLORIDE
  17. LIDOCAINE [Concomitant]
     Active Substance: LIDOCAINE
  18. NEXIUM [Concomitant]
     Active Substance: ESOMEPRAZOLE MAGNESIUM
  19. FLONASE [Concomitant]
     Active Substance: FLUTICASONE PROPIONATE

REACTIONS (15)
  - Loss of consciousness [Unknown]
  - Seizure [Unknown]
  - COVID-19 [Unknown]
  - Bronchitis [Unknown]
  - Pharyngitis streptococcal [Unknown]
  - Viral infection [Unknown]
  - Insurance issue [Unknown]
  - Product use issue [Unknown]
  - Ear infection [Unknown]
  - Infectious mononucleosis [Unknown]
  - Heart rate decreased [Unknown]
  - Injection site mass [Unknown]
  - Injection site swelling [Unknown]
  - Swelling [Unknown]
  - Urticaria [Unknown]

NARRATIVE: CASE EVENT DATE: 20230413
